FAERS Safety Report 6733199-2 (Version None)
Quarter: 2010Q2

REPORT INFORMATION
  Report Type: 
  Country: None (occurrence: None)
  Receive Date: 20100520
  Receipt Date: 20100511
  Transmission Date: 20101027
  Serious: Yes (Hospitalization)
  Sender: FDA-Public Use
  Company Number: US-BIOGENIDEC-2010BI015843

PATIENT
  Age: 38 Year
  Sex: Male
  Weight: 79 kg

DRUGS (4)
  1. TYSABRI [Suspect]
     Indication: MULTIPLE SCLEROSIS
     Route: 042
     Dates: start: 20090514
  2. CYMBALTA [Concomitant]
     Indication: PAIN
  3. AMITIZA [Concomitant]
     Indication: GASTROINTESTINAL DISORDER
  4. IMURAN [Concomitant]
     Indication: MULTIPLE SCLEROSIS

REACTIONS (1)
  - MUSCLE SPASTICITY [None]
